FAERS Safety Report 4914787-2 (Version None)
Quarter: 2006Q1

REPORT INFORMATION
  Report Type: 
  Country: None (occurrence: None)
  Receive Date: 20060113
  Receipt Date: 20051021
  Transmission Date: 20060701
  Serious: No
  Sender: FDA-Public Use
  Company Number: 2005SP003610

PATIENT
  Age: 50 Year
  Sex: Male
  Weight: 90.7194 kg

DRUGS (1)
  1. LUNESTA [Suspect]
     Indication: MIDDLE INSOMNIA
     Dosage: 2 MG; PRN ; ORAL
     Route: 048
     Dates: start: 20051020

REACTIONS (3)
  - DRY MOUTH [None]
  - DYSGEUSIA [None]
  - NAUSEA [None]
